FAERS Safety Report 5017060-X (Version None)
Quarter: 2006Q2

REPORT INFORMATION
  Report Type: 
  Country: None (occurrence: None)
  Receive Date: 20060526
  Receipt Date: 20060509
  Transmission Date: 20061013
  Serious: Yes (Hospitalization, Other)
  Sender: FDA-Public Use
  Company Number: US200605001850

PATIENT
  Age: 15 Year
  Sex: Male

DRUGS (3)
  1. STRATTERA [Suspect]
     Indication: ATTENTION DEFICIT/HYPERACTIVITY DISORDER
     Dosage: 60 MG, DAILY (1/D)
     Dates: start: 20060401, end: 20060504
  2. CORICIDIN [Concomitant]
  3. ABILIFY [Concomitant]

REACTIONS (1)
  - SUICIDE ATTEMPT [None]
